FAERS Safety Report 20855407 (Version 1)
Quarter: 2022Q2

REPORT INFORMATION
  Report Type: Report from Study
  Country: CA (occurrence: CA)
  Receive Date: 20220520
  Receipt Date: 20220520
  Transmission Date: 20220720
  Serious: Yes (Other)
  Sender: FDA-Public Use
  Company Number: CA-VERTEX PHARMACEUTICALS-2022-007420

PATIENT
  Sex: Female

DRUGS (1)
  1. TRIKAFTA [Suspect]
     Active Substance: ELEXACAFTOR\IVACAFTOR\TEZACAFTOR
     Indication: Cystic fibrosis
     Dosage: UNK FREQ
     Route: 048
     Dates: end: 202201

REACTIONS (7)
  - Suicidal ideation [Unknown]
  - Muscle twitching [Unknown]
  - Constipation [Unknown]
  - Depression [Unknown]
  - Swelling face [Unknown]
  - Eye contusion [Unknown]
  - Urticaria [Unknown]
